APPROVED DRUG PRODUCT: OXYCODONE AND ACETAMINOPHEN
Active Ingredient: ACETAMINOPHEN; OXYCODONE HYDROCHLORIDE
Strength: 500MG;5MG
Dosage Form/Route: CAPSULE;ORAL
Application: A040303 | Product #001
Applicant: VINTAGE PHARMACEUTICALS LLC
Approved: Dec 30, 1999 | RLD: No | RS: No | Type: DISCN